FAERS Safety Report 7007720-3 (Version None)
Quarter: 2010Q3

REPORT INFORMATION
  Report Type: 
  Country: None (occurrence: None)
  Receive Date: 20100920
  Receipt Date: 20100907
  Transmission Date: 20110219
  Serious: Yes (Hospitalization)
  Sender: FDA-Public Use
  Company Number: 1000016230

PATIENT
  Age: 61 Year
  Sex: Female

DRUGS (5)
  1. ESCITALOPRAM [Suspect]
     Indication: DEPRESSION
     Dosage: 20 MG (20 MG, 1 IN 1 D)
     Dates: start: 20100501
  2. RASAGILINE MESYLATE [Suspect]
     Dosage: 1 MG (1 MG, 1 IN 1 D), ORAL
     Route: 048
     Dates: start: 20090101
  3. MODOPAR (MADOPAR) [Suspect]
     Indication: PARKINSON'S DISEASE
     Dosage: 2000 MG (250 MG, 8 IN 1 D), ORAL
     Route: 048
     Dates: start: 20000101
  4. PRAMIPEXOLE DIHYDROCHLORIDE [Suspect]
     Indication: PARKINSON'S DISEASE
     Dosage: 3.15 MG (3.15 MG, 1 IN 1 D), ORAL
     Route: 048
     Dates: start: 20090101
  5. COMTAN [Suspect]
     Indication: PARKINSON'S DISEASE
     Dosage: 1200 MG (200 MG, 6 IN 1 D)

REACTIONS (2)
  - COMPULSIONS [None]
  - OBSESSIVE-COMPULSIVE DISORDER [None]
